FAERS Safety Report 5155596-1 (Version None)
Quarter: 2006Q4

REPORT INFORMATION
  Report Type: 
  Country: None (occurrence: None)
  Receive Date: 20061114
  Receipt Date: 20061031
  Transmission Date: 20070319
  Serious: Yes (Life-Threatening, Disabling)
  Sender: FDA-Public Use
  Company Number: HQWYE182702NOV06

PATIENT
  Age: 43 Year
  Sex: Male

DRUGS (10)
  1. TYGACIL [Suspect]
     Indication: PNEUMONIA
     Dosage: 50 MG 1X PER 12 HR, INTRAVENOUS; 50 MG 1X PER 12 HR, INTRAVENOUS
     Route: 042
     Dates: start: 20060916, end: 20060917
  2. TYGACIL [Suspect]
     Indication: PNEUMONIA
     Dosage: 50 MG 1X PER 12 HR, INTRAVENOUS; 50 MG 1X PER 12 HR, INTRAVENOUS
     Route: 042
     Dates: start: 20060919, end: 20060925
  3. PRECEDEX [Concomitant]
  4. SOLU-MEDROL [Concomitant]
  5. PROTONIX [Concomitant]
  6. ALDACTONE [Concomitant]
  7. DEMADEX [Concomitant]
  8. ZOFRAN [Concomitant]
  9. NEOMYCIN [Concomitant]
  10. ASACOL [Concomitant]

REACTIONS (2)
  - APALLIC SYNDROME [None]
  - STATUS EPILEPTICUS [None]
